FAERS Safety Report 5027140-0 (Version None)
Quarter: 2006Q2

REPORT INFORMATION
  Report Type: 
  Country: None (occurrence: None)
  Receive Date: 20060615
  Receipt Date: 20060608
  Transmission Date: 20061013
  Serious: Yes (Other)
  Sender: FDA-Public Use
  Company Number: FI-SANOFI-SYNTHELABO-A01200604420

PATIENT
  Age: 44 Year
  Sex: Male

DRUGS (2)
  1. TARIVID [Suspect]
     Indication: PROSTATIC DISORDER
     Dosage: 600 MG
     Route: 048
     Dates: start: 20060605, end: 20060607
  2. XATRAL CR [Suspect]
     Indication: PROSTATIC DISORDER
     Route: 048
     Dates: start: 20060605, end: 20060607

REACTIONS (2)
  - LARYNGEAL OEDEMA [None]
  - PHARYNGEAL HYPOAESTHESIA [None]
